FAERS Safety Report 15392988 (Version 1)
Quarter: 2018Q3

REPORT INFORMATION
  Report Type: Report from Study
  Country: FR (occurrence: FR)
  Receive Date: 20180917
  Receipt Date: 20180917
  Transmission Date: 20181010
  Serious: Yes (Other)
  Sender: FDA-Public Use
  Company Number: PHHY2018FR083224

PATIENT
  Age: 58 Year
  Sex: Male
  Weight: 98 kg

DRUGS (14)
  1. TAXOL [Concomitant]
     Active Substance: PACLITAXEL
     Indication: LUNG NEOPLASM MALIGNANT
     Dosage: 80 MG/M2, UNK
     Route: 065
     Dates: start: 20180522
  2. TAXOL [Concomitant]
     Active Substance: PACLITAXEL
     Dosage: 80 MG/M2, UNK
     Route: 065
     Dates: start: 20180616
  3. TAXOL [Concomitant]
     Active Substance: PACLITAXEL
     Dosage: 80 MG/M2, UNK
     Route: 065
     Dates: start: 20180717
  4. CARBOPLATINE [Concomitant]
     Active Substance: CARBOPLATIN
     Dosage: AREA UNDER CURVE 5 (AUC5) AND AUC4
     Route: 065
     Dates: start: 20180807
  5. TAXOL [Concomitant]
     Active Substance: PACLITAXEL
     Dosage: 80 MG/M2, UNK
     Route: 065
     Dates: start: 20180626
  6. ZARZIO [Suspect]
     Active Substance: FILGRASTIM
     Dosage: 30 MU/I
     Route: 058
     Dates: start: 20180726, end: 20180730
  7. CARBOPLATINE [Concomitant]
     Active Substance: CARBOPLATIN
     Indication: LUNG NEOPLASM MALIGNANT
     Dosage: AREA UNDER CURVE 5 (AUC5) AND AUC4
     Route: 065
     Dates: start: 20180515
  8. CARBOPLATINE [Concomitant]
     Active Substance: CARBOPLATIN
     Dosage: AREA UNDER CURVE 5 (AUC5) AND AUC4
     Route: 065
     Dates: start: 20180612
  9. TAXOL [Concomitant]
     Active Substance: PACLITAXEL
     Dosage: 80 MG/M2, UNK
     Route: 065
     Dates: start: 20180807
  10. TAXOL [Concomitant]
     Active Substance: PACLITAXEL
     Dosage: 80 MG/M2, UNK
     Route: 065
     Dates: start: 20180619
  11. ZARZIO [Suspect]
     Active Substance: FILGRASTIM
     Indication: NEUTROPENIA
     Dosage: 30 MU/I
     Route: 058
     Dates: start: 20180531, end: 20180604
  12. ZARZIO [Suspect]
     Active Substance: FILGRASTIM
     Dosage: 30 MU/I
     Route: 058
     Dates: start: 20180628, end: 20180702
  13. CARBOPLATINE [Concomitant]
     Active Substance: CARBOPLATIN
     Dosage: AREA UNDER CURVE 5 (AUC5) AND AUC4
     Route: 065
     Dates: start: 20180710
  14. TAXOL [Concomitant]
     Active Substance: PACLITAXEL
     Dosage: 80 MG/M2, UNK
     Route: 065
     Dates: start: 20180710

REACTIONS (17)
  - Thrombocytopenia [Recovered/Resolved]
  - Thrombocytopenia [Recovered/Resolved]
  - Lymphopenia [Recovered/Resolved]
  - Anaemia [Not Recovered/Not Resolved]
  - Neutropenia [Recovered/Resolved]
  - Neutropenia [Recovered/Resolved]
  - Thrombocytopenia [Recovered/Resolved]
  - Lymphopenia [Recovered/Resolved]
  - Neutropenia [Recovered/Resolved]
  - Hypokalaemia [Recovered/Resolved]
  - Anaemia [Recovered/Resolved]
  - Lymphopenia [Recovered/Resolved]
  - Thrombocytopenia [Recovered/Resolved]
  - Thrombocytopenia [Recovered/Resolved]
  - Lymphopenia [Recovered/Resolved]
  - Lymphopenia [Recovered/Resolved]
  - Hypocalcaemia [Recovered/Resolved]

NARRATIVE: CASE EVENT DATE: 20180604
